FAERS Safety Report 13467031 (Version 1)
Quarter: 2017Q2

REPORT INFORMATION
  Report Type: Report from Study
  Country: US (occurrence: US)
  Receive Date: 20170421
  Receipt Date: 20170421
  Transmission Date: 20170830
  Serious: Yes (Other)
  Sender: FDA-Public Use
  Company Number: PHEH2017US011282

PATIENT
  Sex: Male

DRUGS (1)
  1. GLEEVEC [Suspect]
     Active Substance: IMATINIB MESYLATE
     Indication: PRODUCT USED FOR UNKNOWN INDICATION
     Dosage: UNK
     Route: 065
     Dates: start: 200106

REACTIONS (5)
  - Eye haemorrhage [Unknown]
  - Lacrimation increased [Unknown]
  - Muscle spasms [Unknown]
  - Nerve compression [Unknown]
  - Periorbital oedema [Unknown]
